FAERS Safety Report 6119177-5 (Version None)
Quarter: 2009Q1

REPORT INFORMATION
  Report Type: 
  Country: None (occurrence: None)
  Receive Date: 20090316
  Receipt Date: 20090304
  Transmission Date: 20090719
  Serious: Yes (Hospitalization)
  Sender: FDA-Public Use
  Company Number: FR-WYE-H08502409

PATIENT
  Sex: Male

DRUGS (13)
  1. INIPOMP [Suspect]
     Indication: PROPHYLAXIS
     Dosage: 1 DF
     Route: 048
     Dates: start: 20080515, end: 20080529
  2. CARDENSIEL [Suspect]
     Indication: CARDIAC FAILURE
     Dosage: 1.25 MG
     Route: 048
     Dates: start: 20080506, end: 20080525
  3. RIFADIN [Suspect]
     Indication: ENDOCARDITIS
     Route: 048
     Dates: start: 20080515, end: 20080527
  4. TRIATEC [Suspect]
     Indication: CARDIAC FAILURE
     Dosage: 5 MG
     Route: 048
     Dates: start: 20080517, end: 20080529
  5. TAHOR [Suspect]
     Indication: HYPERCHOLESTEROLAEMIA
     Dosage: 1 DF
     Route: 048
     Dates: start: 20080101, end: 20080529
  6. GENTAMICIN [Suspect]
     Indication: ENDOCARDITIS
     Dosage: UNKNOWN
     Dates: start: 20080502, end: 20080501
  7. LEXOMIL [Suspect]
     Indication: ANXIETY
     Route: 048
     Dates: start: 20080310, end: 20080529
  8. SINEMET [Suspect]
     Dosage: UNKNOWN
  9. STALEVO 100 [Suspect]
     Dosage: UNKNOWN
  10. KARDEGIC [Suspect]
     Dosage: UNKNOWN
     Dates: start: 20080515, end: 20080529
  11. LASIX [Suspect]
     Dosage: UNKNOWN
     Dates: start: 20080515, end: 20080529
  12. VANCOMYCIN [Suspect]
     Indication: ENDOCARDITIS
     Dosage: 2 GM
     Route: 042
     Dates: start: 20071227, end: 20080125
  13. ATARAX [Suspect]
     Indication: ANXIETY
     Dosage: 1 DF
     Route: 048
     Dates: start: 20080310, end: 20080329

REACTIONS (1)
  - DRUG RASH WITH EOSINOPHILIA AND SYSTEMIC SYMPTOMS [None]
